FAERS Safety Report 10954033 (Version 1)
Quarter: 2015Q1

REPORT INFORMATION
  Report Type: Spontaneous
  Country: US (occurrence: None)
  Receive Date: 20150226
  Receipt Date: 20150226
  Transmission Date: 20150721
  Serious: Yes (Hospitalization)
  Sender: FDA-Public Use
  Company Number: TPA2008A01330

PATIENT
  Age: 54 Year
  Sex: Female
  Weight: 80.29 kg

DRUGS (1)
  1. DUETACT [Suspect]
     Active Substance: GLIMEPIRIDE\PIOGLITAZONE HYDROCHLORIDE
     Indication: DIABETES MELLITUS
     Route: 048
     Dates: start: 20080131, end: 20080818

REACTIONS (6)
  - Oedema peripheral [None]
  - Tachycardia [None]
  - Fatigue [None]
  - Weight increased [None]
  - Cardiac failure congestive [None]
  - Dyspnoea [None]

NARRATIVE: CASE EVENT DATE: 20080812
